FAERS Safety Report 9272353 (Version 1)
Quarter: 2013Q2

REPORT INFORMATION
  Report Type: Spontaneous
  Country: US (occurrence: US)
  Receive Date: 20130506
  Receipt Date: 20130506
  Transmission Date: 20140414
  Serious: No
  Sender: FDA-Public Use
  Company Number: US-ASTRAZENECA-2013SE20060

PATIENT
  Age: 71 Year
  Sex: Male

DRUGS (5)
  1. PRILOSEC OTC [Suspect]
     Indication: GASTROOESOPHAGEAL REFLUX DISEASE
     Route: 048
     Dates: start: 20130320, end: 20130320
  2. LISINOPRIL [Concomitant]
     Dosage: UNKNOWN
  3. HYDROCHLOROTHIAZIDE [Concomitant]
     Dosage: UNKNOWN
  4. ALPRAZOLAM [Concomitant]
     Dosage: UNKNOWN
  5. SENNA LAXATIVE /00571901/ [Concomitant]
     Dosage: UNKNOWN

REACTIONS (2)
  - Dizziness [Recovered/Resolved]
  - Off label use [Recovered/Resolved]
